FAERS Safety Report 6005599-X (Version None)
Quarter: 2008Q4

REPORT INFORMATION
  Report Type: 
  Country: None (occurrence: None)
  Receive Date: 20081217
  Receipt Date: 20081205
  Transmission Date: 20090506
  Serious: Yes (Other)
  Sender: FDA-Public Use
  Company Number: AR-PFIZER INC-2008089491

PATIENT

DRUGS (4)
  1. ZOLOFT [Suspect]
     Route: 048
     Dates: start: 20080801
  2. OLANZAPINE [Concomitant]
     Route: 048
     Dates: start: 20080401
  3. LAMOTRIGINE [Concomitant]
     Route: 048
     Dates: start: 20080401
  4. LORAZEPAM [Concomitant]
     Route: 048

REACTIONS (1)
  - WHITE BLOOD CELL COUNT INCREASED [None]
